FAERS Safety Report 8772844 (Version 3)
Quarter: 2012Q4

REPORT INFORMATION
  Report Type: Report from Study
  Country: JP (occurrence: JP)
  Receive Date: 20120907
  Receipt Date: 20121029
  Transmission Date: 20130627
  Serious: Yes (Hospitalization, Other)
  Sender: FDA-Public Use
  Company Number: JP-GENZYME-THYM-1003067

PATIENT
  Age: 61 Year
  Sex: Male
  Weight: 60 kg

DRUGS (34)
  1. THYMOGLOBULIN [Suspect]
     Indication: APLASTIC ANAEMIA
     Dosage: 225 mg, qd
     Route: 042
     Dates: start: 20110112, end: 20110116
  2. CILOSTAZOL [Concomitant]
     Indication: ANGINA PECTORIS
     Dosage: UNK
     Dates: start: 20101214, end: 20110227
  3. SARPOGRELATE HYDROCHLORIDE [Concomitant]
     Indication: ANGINA PECTORIS
     Dosage: UNK
     Dates: start: 20101214, end: 20110227
  4. CANDESARTAN CILEXETIL [Concomitant]
     Indication: HYPERTENSION
     Dosage: UNK
     Dates: start: 20091225, end: 20110131
  5. CARVEDILOL [Concomitant]
     Indication: HYPERTENSION
     Dosage: UNK
     Dates: start: 20091225, end: 20110131
  6. ISOSORBIDE MONONITRATE [Concomitant]
     Indication: ANGINA PECTORIS
     Dosage: UNK
     Dates: start: 20110126
  7. DILTIAZEM HYDROCHLORIDE [Concomitant]
     Indication: ANGINA PECTORIS
     Dosage: UNK
     Dates: start: 20110204
  8. ATORVASTATIN CALCIUM [Concomitant]
     Indication: HYPERLIPIDAEMIA
     Dosage: UNK
     Dates: start: 20110205
  9. ASPIRIN [Concomitant]
     Indication: ANGINA PECTORIS
     Dosage: UNK
     Dates: start: 20110212, end: 20110301
  10. INSULIN HUMAN [Concomitant]
     Indication: DIABETES MELLITUS
     Dosage: UNK
     Dates: start: 20110112, end: 20110418
  11. INSULIN HUMAN [Concomitant]
     Dosage: UNK
     Dates: start: 20110419
  12. FUROSEMIDE [Concomitant]
     Indication: HYPERTENSION
     Dosage: UNK
     Dates: start: 20110513
  13. CICLOSPORIN [Concomitant]
     Indication: APLASTIC ANAEMIA
     Dosage: UNK
     Dates: start: 20110112
  14. DEXCHLORPHENIRAMINE MALEATE [Concomitant]
     Indication: PREMEDICATION
     Dosage: UNK
     Dates: start: 20110112, end: 20110116
  15. METHYLPREDNISOLONE SODIUM SUCCINATE [Concomitant]
     Indication: PREMEDICATION
     Dosage: UNK
     Dates: start: 20110112, end: 20110116
  16. PREDNISOLONE [Concomitant]
     Indication: PREMEDICATION
     Dosage: UNK
     Dates: start: 20110117, end: 20110222
  17. ACETAMINOPHEN [Concomitant]
     Indication: PREMEDICATION
     Dosage: UNK
     Dates: start: 20110112, end: 20110116
  18. FAMOTIDINE [Concomitant]
     Indication: PROPHYLAXIS AGAINST GASTROINTESTINAL ULCER
     Dosage: UNK
     Dates: start: 20110112, end: 20110221
  19. BACTRIM [Concomitant]
     Indication: PROPHYLAXIS
     Dosage: UNK
     Dates: start: 20110112, end: 20110221
  20. CIPROFLOXACIN HYDROCHLORIDE [Concomitant]
     Indication: INFECTION PROPHYLAXIS
     Dosage: UNK
     Dates: start: 20110112, end: 20110221
  21. FLUCONAZOLE [Concomitant]
     Indication: PROPHYLAXIS
     Dosage: UNK
     Dates: start: 20110112, end: 20110221
  22. FILGRASTIM [Concomitant]
     Indication: APLASTIC ANAEMIA
     Dosage: UNK
     Dates: start: 20110113
  23. LANSOPRAZOLE [Concomitant]
     Indication: GASTROOESOPHAGEAL REFLUX DISEASE
     Dosage: UNK
     Dates: start: 20110222, end: 20110328
  24. MOSAPRIDE CITRATE [Concomitant]
     Indication: GASTROOESOPHAGEAL REFLUX DISEASE
     Dosage: UNK
     Dates: start: 20110215
  25. LORAZEPAM [Concomitant]
     Indication: DEPRESSION
     Dosage: UNK
     Dates: start: 20110309
  26. CEFTRIAXONE SODIUM [Concomitant]
     Indication: C-REACTIVE PROTEIN INCREASED
     Dosage: UNK
     Dates: start: 20110214, end: 20110217
  27. MINOCYCLINE HYDROCHLORIDE [Concomitant]
     Indication: C-REACTIVE PROTEIN INCREASED
     Dosage: UNK
     Dates: start: 20110217, end: 20110224
  28. LEVOFLOXACIN [Concomitant]
     Indication: LOWER RESPIRATORY TRACT INFECTION BACTERIAL
     Dosage: UNK
     Dates: start: 20110225, end: 20110614
  29. AMPHOTERICIN B [Concomitant]
     Indication: PNEUMONIA FUNGAL
     Dosage: UNK
     Dates: start: 20110227, end: 20110307
  30. MICAFUNGIN SODIUM [Concomitant]
     Indication: PNEUMONIA FUNGAL
     Dosage: UNK
     Dates: start: 20110308, end: 20110328
  31. TRANEXAMIC ACID [Concomitant]
     Indication: HAEMOPTYSIS
     Dosage: UNK
     Dates: start: 20110228, end: 20110301
  32. PLATELETS [Concomitant]
     Indication: APLASTIC ANAEMIA
     Dosage: UNK
     Dates: start: 20101214, end: 20110502
  33. RED BLOOD CELLS [Concomitant]
     Indication: APLASTIC ANAEMIA
     Dosage: UNK
     Dates: start: 20101228
  34. NITROGLYCERIN [Concomitant]
     Indication: ANGINA PECTORIS
     Dosage: UNK
     Dates: start: 20110113, end: 20110125

REACTIONS (6)
  - Angina pectoris [Recovered/Resolved]
  - Haemoptysis [Recovered/Resolved]
  - Lung infection [Recovered/Resolved]
  - Pneumonia fungal [Recovered/Resolved]
  - Pneumonia [Recovered/Resolved]
  - C-reactive protein increased [Recovered/Resolved]
